FAERS Safety Report 5104942-3 (Version None)
Quarter: 2006Q3

REPORT INFORMATION
  Report Type: 
  Country: None (occurrence: None)
  Receive Date: 20060914
  Receipt Date: 20060905
  Transmission Date: 20061208
  Serious: Yes (Other)
  Sender: FDA-Public Use
  Company Number: JP-SANOFI-SYNTHELABO-A01200607463

PATIENT
  Age: 78 Year
  Sex: Male

DRUGS (3)
  1. CALCIUM LEVOFOLINATE [Suspect]
     Route: 042
     Dates: start: 20060831, end: 20060831
  2. FLUOROURACIL [Suspect]
     Dosage: 400 MG/M2 IN BOLUS THEN 2400 MG/M2 AS INFUSION
     Route: 042
     Dates: start: 20060831, end: 20060831
  3. OXALIPLATIN [Suspect]
     Route: 042
     Dates: start: 20060831, end: 20060831

REACTIONS (1)
  - DEPRESSED LEVEL OF CONSCIOUSNESS [None]
